FAERS Safety Report 9995979 (Version 2)
Quarter: 2014Q3

REPORT INFORMATION
  Report Type: Spontaneous
  Country: US (occurrence: US)
  Receive Date: 20140311
  Receipt Date: 20140903
  Transmission Date: 20150326
  Serious: Yes (Hospitalization)
  Sender: FDA-Public Use
  Company Number: US-BAYER-2014-036308

PATIENT
  Age: 38 Year
  Sex: Female
  Weight: 61.22 kg

DRUGS (4)
  1. DECADRON [DEXAMETHASONE ACETATE] [Concomitant]
  2. YASMIN [Suspect]
     Active Substance: DROSPIRENONE\ETHINYL ESTRADIOL
     Dosage: UNK
     Dates: start: 2005, end: 2006
  3. FOSPHENYTOIN [Concomitant]
     Active Substance: FOSPHENYTOIN\FOSPHENYTOIN SODIUM
     Route: 042
  4. DILAUDID [Concomitant]
     Active Substance: HYDROMORPHONE HYDROCHLORIDE
     Indication: HEADACHE

REACTIONS (8)
  - Injury [Recovered/Resolved]
  - Cerebrovascular accident [Recovered/Resolved]
  - General physical health deterioration [Recovered/Resolved]
  - Abdominal pain [None]
  - Cerebral thrombosis [Recovered/Resolved]
  - Transverse sinus thrombosis [Recovered/Resolved]
  - Headache [Recovered/Resolved]
  - Pain [None]

NARRATIVE: CASE EVENT DATE: 200610
